FAERS Safety Report 6615147-9 (Version None)
Quarter: 2010Q1

REPORT INFORMATION
  Report Type: 
  Country: None (occurrence: None)
  Receive Date: 20100305
  Receipt Date: 20100226
  Transmission Date: 20100710
  Serious: Yes (Hospitalization)
  Sender: FDA-Public Use
  Company Number: IT-ASTRAZENECA-2010SE08574

PATIENT
  Age: 20532 Day
  Sex: Male

DRUGS (8)
  1. PROVISACOR [Suspect]
     Indication: ACUTE MYOCARDIAL INFARCTION
     Route: 048
  2. ATENOLOL [Suspect]
     Indication: ACUTE MYOCARDIAL INFARCTION
     Route: 048
  3. ENALAPRIL MALEATE [Suspect]
     Indication: ACUTE MYOCARDIAL INFARCTION
     Route: 048
  4. AMLODIPINE [Suspect]
     Indication: ACUTE MYOCARDIAL INFARCTION
     Route: 048
  5. KARVEA [Suspect]
     Indication: ACUTE MYOCARDIAL INFARCTION
     Route: 048
  6. ASPIRIN [Suspect]
     Route: 048
  7. TRINIPLAS [Suspect]
     Route: 062
  8. ESKIM [Suspect]
     Route: 048

REACTIONS (2)
  - HYPERGLYCAEMIA [None]
  - HYPOTENSION [None]
